FAERS Safety Report 7707874-7 (Version None)
Quarter: 2011Q3

REPORT INFORMATION
  Report Type: 
  Country: None (occurrence: None)
  Receive Date: 20110824
  Receipt Date: 20110810
  Transmission Date: 20111222
  Serious: Yes (Other)
  Sender: FDA-Public Use
  Company Number: US-ELI_LILLY_AND_COMPANY-US201106008145

PATIENT
  Age: 64 Year
  Sex: Female

DRUGS (2)
  1. FORTEO [Suspect]
     Indication: OSTEOPOROSIS
     Dosage: 20 UG, QD
     Dates: start: 20110401, end: 20110501
  2. FORTEO [Suspect]
     Dosage: 20 UG, QD
     Dates: start: 20110501, end: 20110601

REACTIONS (6)
  - FOOT DEFORMITY [None]
  - PAIN IN EXTREMITY [None]
  - FOOT OPERATION [None]
  - PAIN [None]
  - RHEUMATOID ARTHRITIS [None]
  - LIMB INJURY [None]
